FAERS Safety Report 19382660 (Version 2)
Quarter: 2021Q2

REPORT INFORMATION
  Report Type: Spontaneous
  Country: AT (occurrence: AT)
  Receive Date: 20210607
  Receipt Date: 20210615
  Transmission Date: 20210717
  Serious: Yes (Hospitalization, Other)
  Sender: FDA-Public Use
  Company Number: AT-GILEAD-2021-0534063

PATIENT
  Sex: Female
  Weight: 54 kg

DRUGS (7)
  1. CIPRALEX [Concomitant]
     Active Substance: ESCITALOPRAM OXALATE
  2. PROLIA [Concomitant]
     Active Substance: DENOSUMAB
  3. VIREAD [Suspect]
     Active Substance: TENOFOVIR DISOPROXIL FUMARATE
     Indication: CHRONIC HEPATITIS B
     Dosage: 245 MG
     Route: 048
     Dates: start: 2009, end: 201908
  4. REDUCTO [Concomitant]
  5. METAGELAN [Concomitant]
     Active Substance: DIPYRONE
  6. CALCITROL [CALCITRIOL] [Concomitant]
     Active Substance: CALCITRIOL
  7. METAMIZOLE [Concomitant]
     Active Substance: METAMIZOLE

REACTIONS (3)
  - Osteomalacia [Unknown]
  - Fanconi syndrome acquired [Not Recovered/Not Resolved]
  - Pathological fracture [Unknown]

NARRATIVE: CASE EVENT DATE: 201707
